FAERS Safety Report 9380463 (Version 2)
Quarter: 2013Q3

REPORT INFORMATION
  Report Type: Spontaneous
  Country: US (occurrence: US)
  Receive Date: 20130702
  Receipt Date: 20130723
  Transmission Date: 20140515
  Serious: Yes (Hospitalization)
  Sender: FDA-Public Use
  Company Number: US-009507513-1205USA04291

PATIENT
  Age: 88 Year
  Sex: Female

DRUGS (3)
  1. FOSAMAX [Suspect]
     Indication: BONE DISORDER
     Dosage: UNKNOWN, QW
     Route: 048
     Dates: end: 2010
  2. IRON (UNSPECIFIED) [Concomitant]
  3. VITAMIN D (UNSPECIFIED) [Concomitant]

REACTIONS (3)
  - Lower limb fracture [Not Recovered/Not Resolved]
  - Fall [Not Recovered/Not Resolved]
  - Tooth loss [Not Recovered/Not Resolved]
